FAERS Safety Report 9663335 (Version 2)
Quarter: 2013Q4

REPORT INFORMATION
  Report Type: Spontaneous
  Country: BR (occurrence: BR)
  Receive Date: 20131101
  Receipt Date: 20131101
  Transmission Date: 20140711
  Serious: Yes (Other)
  Sender: FDA-Public Use
  Company Number: BR-AMGEN-BRASP2012064622

PATIENT
  Age: 71 Year
  Sex: Female
  Weight: 76 kg

DRUGS (9)
  1. ENBREL [Suspect]
     Indication: RHEUMATOID ARTHRITIS
     Dosage: 50 MG, ONCE WEEKLY
     Route: 058
     Dates: start: 2012, end: 2013
  2. CAPTOPRIL [Concomitant]
     Indication: BLOOD PRESSURE ABNORMAL
     Dosage: 3 TABLETS (25MG), UNSPECIFIED FREQUENCY
  3. AMLODIPINE [Concomitant]
     Indication: BLOOD PRESSURE ABNORMAL
     Dosage: 5 MG, 1X/DAY
  4. AAS [Concomitant]
     Indication: BLOOD PRESSURE ABNORMAL
     Dosage: UNK
     Dates: start: 1995
  5. SIMVASTATIN [Concomitant]
     Indication: BLOOD CHOLESTEROL
     Dosage: 20 MG, 1X/DAY
  6. CARVEDILOL [Concomitant]
     Indication: CARDIAC DISORDER
     Dosage: 25 MG, 2X/DAY
  7. VASOGARD [Concomitant]
     Indication: ANTICOAGULANT THERAPY
     Dosage: 100 MG, 2X/DAY
     Dates: start: 2011
  8. GLIFAGE [Concomitant]
     Indication: DIABETES MELLITUS
     Dosage: UNK
     Dates: start: 201108
  9. GLIFAGE [Concomitant]
     Dosage: 500 MG, 1X/DAY

REACTIONS (6)
  - Arthropathy [Unknown]
  - Wound haemorrhage [Not Recovered/Not Resolved]
  - Gait disturbance [Not Recovered/Not Resolved]
  - Malaise [Not Recovered/Not Resolved]
  - Weight increased [Not Recovered/Not Resolved]
  - Injection site pain [Unknown]
